FAERS Safety Report 5028667-8 (Version None)
Quarter: 2006Q2

REPORT INFORMATION
  Report Type: 
  Country: None (occurrence: None)
  Receive Date: 20060619
  Receipt Date: 20060607
  Transmission Date: 20061013
  Serious: Yes (Other)
  Sender: FDA-Public Use
  Company Number: PHRM2006FR01804

PATIENT
  Age: 44 Year
  Sex: Female

DRUGS (5)
  1. LOXAPAC [Concomitant]
  2. LEPTICUR [Concomitant]
  3. SULFARLEM [Concomitant]
  4. DEROXAT [Concomitant]
  5. RITALIN [Suspect]
     Indication: PSYCHOTIC DISORDER
     Route: 042

REACTIONS (2)
  - DRUG ABUSER [None]
  - INCORRECT ROUTE OF DRUG ADMINISTRATION [None]
